FAERS Safety Report 18266864 (Version 1)
Quarter: 2020Q3

REPORT INFORMATION
  Report Type: Spontaneous
  Country: US (occurrence: US)
  Receive Date: 20200915
  Receipt Date: 20200915
  Transmission Date: 20201103
  Serious: No
  Sender: FDA-Public Use
  Company Number: US-GW PHARMA-202007USGW03070

PATIENT

DRUGS (1)
  1. EPIDIOLEX [Suspect]
     Active Substance: CANNABIDIOL
     Indication: LENNOX-GASTAUT SYNDROME
     Dosage: 8.58 MG/KG/DAY, 200 MILLIGRAM, BID
     Route: 048
     Dates: start: 201904

REACTIONS (2)
  - Weight increased [Unknown]
  - Increased appetite [Unknown]
